FAERS Safety Report 8869536 (Version 1)
Quarter: 2012Q4

REPORT INFORMATION
  Report Type: 
  Country: IE (occurrence: IE)
  Receive Date: 20121028
  Receipt Date: 20121028
  Transmission Date: 20130627
  Serious: Yes (Hospitalization)
  Sender: FDA-Public Use
  Company Number: IE-AMGEN-IRLSP2012068243

PATIENT
  Age: 63 Year
  Sex: Female

DRUGS (1)
  1. ARANESP [Suspect]
     Indication: RENAL FAILURE CHRONIC
     Dosage: 60 mug, qmo
     Route: 058
     Dates: start: 20110503

REACTIONS (5)
  - Confusional state [Recovering/Resolving]
  - Balance disorder [Unknown]
  - Dysarthria [Unknown]
  - Emotional distress [Unknown]
  - Urinary tract infection [Not Recovered/Not Resolved]
